FAERS Safety Report 4850597-2 (Version None)
Quarter: 2005Q4

REPORT INFORMATION
  Report Type: 
  Country: None (occurrence: None)
  Receive Date: 20051208
  Receipt Date: 20051122
  Transmission Date: 20060501
  Serious: Yes (Hospitalization)
  Sender: FDA-Public Use
  Company Number: 220090

PATIENT
  Age: 52 Year
  Sex: Female
  Weight: 123.5 kg

DRUGS (7)
  1. HERCEPTIN [Suspect]
     Indication: BREAST CANCER
     Dosage: 8 MG/KG, SINGLE, INTRAVENOUS; 6 MG/KG, INTRAVENOUS
     Route: 042
     Dates: start: 20051102, end: 20051102
  2. HERCEPTIN [Suspect]
     Indication: BREAST CANCER
     Dosage: 8 MG/KG, SINGLE, INTRAVENOUS; 6 MG/KG, INTRAVENOUS
     Route: 042
     Dates: start: 20051101
  3. CYCLOPHOSPHAMIDE [Suspect]
     Indication: BREAST CANCER
     Dosage: 600 MG/KG, 2/MONTH, INTRAVENOUS
     Route: 042
     Dates: start: 20051102
  4. METHOTREXATE [Suspect]
     Indication: BREAST CANCER
     Dosage: 40 MG/KG, 2/MONTH, INTRAVENOUS
     Route: 042
     Dates: start: 20051102
  5. FLUOROURACIL [Suspect]
     Indication: BREAST CANCER
     Dosage: 600 MG/KG, 2/MONTH, INTRAVENOUS
     Route: 042
     Dates: start: 20051102
  6. PACLITAXEL [Concomitant]
  7. DOXORUBICIN HCL [Concomitant]

REACTIONS (1)
  - FEBRILE NEUTROPENIA [None]
